FAERS Safety Report 7949586 (Version 3)
Quarter: 2017Q3

REPORT INFORMATION
  Report Type: Spontaneous
  Country: JP (occurrence: JP)
  Receive Date: 20110518
  Receipt Date: 20170710
  Transmission Date: 20171128
  Serious: Yes (Death)
  Sender: FDA-Public Use
  Company Number: JP-BAYER-2010-006515

PATIENT
  Age: 82 Year
  Sex: Female
  Weight: 76 kg

DRUGS (8)
  1. NORVASC [Concomitant]
     Active Substance: AMLODIPINE BESYLATE
     Indication: HYPERTENSION
     Dosage: DAILY DOSE 5 MG
     Route: 048
     Dates: end: 20101210
  2. BLOPRESS [Concomitant]
     Active Substance: CANDESARTAN CILEXETIL
     Indication: HYPERTENSION
     Dosage: DAILY DOSE 12 MG
     Route: 048
  3. PLAVIX [Concomitant]
     Active Substance: CLOPIDOGREL BISULFATE
     Indication: CEREBROVASCULAR ACCIDENT PROPHYLAXIS
     Dosage: DAILY DOSE 75 MG
     Route: 048
     Dates: end: 20101210
  4. ACTOS [Concomitant]
     Active Substance: PIOGLITAZONE HYDROCHLORIDE
     Indication: DIABETES MELLITUS
     Dosage: DAILY DOSE 15 MG
     Route: 048
     Dates: end: 20101210
  5. ALDACTONE A [Concomitant]
     Active Substance: SPIRONOLACTONE
     Indication: OEDEMA
     Dosage: DAILY DOSE 25 MG
     Route: 048
     Dates: end: 20101210
  6. NEXAVAR [Suspect]
     Active Substance: SORAFENIB
     Indication: HEPATOCELLULAR CARCINOMA
     Dosage: 200 MG, QOD
     Route: 048
     Dates: start: 20101206, end: 20101210
  7. NITRODERM [Concomitant]
     Active Substance: NITROGLYCERIN
     Indication: ANGINA PECTORIS
     Dosage: DAILY DOSE 25 MG
     Route: 062
     Dates: end: 20101210
  8. BAYASPIRIN [Concomitant]
     Active Substance: ASPIRIN
     Dosage: DAILY DOSE 100 MG
     Route: 048
     Dates: end: 20101210

REACTIONS (3)
  - Cerebrovascular accident [Fatal]
  - Gastrointestinal haemorrhage [Fatal]
  - Myocardial ischaemia [Fatal]

NARRATIVE: CASE EVENT DATE: 20101211
